FAERS Safety Report 5619159-3 (Version None)
Quarter: 2008Q1

REPORT INFORMATION
  Report Type: 
  Country: None (occurrence: None)
  Receive Date: 20080205
  Receipt Date: 20080122
  Transmission Date: 20080703
  Serious: Yes (Other)
  Sender: FDA-Public Use
  Company Number: DSA_31024_2007

PATIENT
  Sex: Female
  Weight: 51.2565 kg

DRUGS (5)
  1. VASOTEC [Suspect]
     Indication: HYPERTENSION
     Dosage: (5 MG BID ORAL), (10 MG 1X ORAL), (DF ORAL)
     Route: 048
     Dates: start: 20071104, end: 20071210
  2. VASOTEC [Suspect]
     Indication: HYPERTENSION
     Dosage: (5 MG BID ORAL), (10 MG 1X ORAL), (DF ORAL)
     Route: 048
     Dates: start: 20071210, end: 20071210
  3. VASOTEC [Suspect]
     Indication: HYPERTENSION
     Dosage: (5 MG BID ORAL), (10 MG 1X ORAL), (DF ORAL)
     Route: 048
     Dates: start: 20071211
  4. VASOTEC [Suspect]
     Dosage: (5 MG BID ORAL) A FEW YEARS
     Route: 048
     Dates: end: 20071101
  5. LEVOXYL [Concomitant]

REACTIONS (5)
  - BLOOD PRESSURE INCREASED [None]
  - DIARRHOEA [None]
  - INCORRECT DOSE ADMINISTERED [None]
  - INSOMNIA [None]
  - PHARMACEUTICAL PRODUCT COMPLAINT [None]
